FAERS Safety Report 8939729 (Version 1)
Quarter: 2012Q4

REPORT INFORMATION
  Report Type: 
  Country: BR (occurrence: BR)
  Receive Date: 20121130
  Receipt Date: 20121130
  Transmission Date: 20130627
  Serious: Yes (Other)
  Sender: FDA-Public Use
  Company Number: PHHY2012BR109074

PATIENT
  Age: 58 Year
  Sex: Female

DRUGS (6)
  1. TOFRANIL [Suspect]
     Indication: PANIC ATTACK
     Dosage: 1 DF, daily
     Route: 048
  2. TOFRANIL [Suspect]
     Dosage: UNK UKN, UNK
     Route: 048
  3. OLCADIL [Suspect]
     Indication: ANXIETY
     Dosage: 1 DF, daily
     Route: 048
  4. SERTRALINE [Suspect]
     Indication: PANIC DISORDER
     Dosage: 1 DF, daily
     Route: 048
  5. FLUOXETINE [Suspect]
     Indication: PANIC DISORDER
     Dosage: 1 DF, daily
     Route: 048
  6. FRONTAL [Suspect]
     Indication: ANXIETY
     Dosage: 1 DF, daily
     Route: 048

REACTIONS (11)
  - Pulpitis dental [Unknown]
  - Stress [Unknown]
  - Sleep disorder [Unknown]
  - Fear [Unknown]
  - Asthenia [Recovered/Resolved]
  - Crying [Unknown]
  - Toothache [Unknown]
  - Panic disorder [Recovered/Resolved]
  - Weight increased [Unknown]
  - Feeling abnormal [Recovered/Resolved]
  - Feeling cold [Recovered/Resolved]
